FAERS Safety Report 23788423 (Version 1)
Quarter: 2024Q2

REPORT INFORMATION
  Report Type: Spontaneous
  Country: JP (occurrence: JP)
  Receive Date: 20240426
  Receipt Date: 20240426
  Transmission Date: 20240716
  Serious: Yes (Other)
  Sender: FDA-Public Use
  Company Number: None

PATIENT
  Age: 79 Year
  Sex: Male

DRUGS (2)
  1. PREDNISOLONE [Suspect]
     Active Substance: PREDNISOLONE
     Indication: Interstitial lung disease
     Dosage: 30 MILLIGRAM, QD
     Route: 065
  2. PREDNISOLONE [Suspect]
     Active Substance: PREDNISOLONE
     Dosage: 17.5 MILLIGRAM, QD
     Route: 065

REACTIONS (8)
  - Nasal necrosis [Recovered/Resolved]
  - Bone lesion [Recovered/Resolved]
  - Chondropathy [Recovered/Resolved]
  - Skin lesion [Recovered/Resolved]
  - Nasal septum perforation [Recovered/Resolved]
  - Mycobacterium chelonae infection [Recovered/Resolved]
  - Atypical mycobacterial infection [Recovered/Resolved]
  - Osteomyelitis [Recovered/Resolved]
